FAERS Safety Report 23581685 (Version 1)
Quarter: 2024Q1

REPORT INFORMATION
  Report Type: Spontaneous
  Country: CN (occurrence: CN)
  Receive Date: 20240229
  Receipt Date: 20240229
  Transmission Date: 20240410
  Serious: Yes (Hospitalization)
  Sender: FDA-Public Use
  Company Number: CN-PFIZER INC-PV202400027654

PATIENT
  Age: 49 Year
  Sex: Female
  Weight: 57.5 kg

DRUGS (1)
  1. XALKORI [Suspect]
     Active Substance: CRIZOTINIB
     Indication: Targeted cancer therapy
     Dosage: 200 MG, 2X/DAY
     Route: 048
     Dates: start: 20240123, end: 20240219

REACTIONS (4)
  - Hepatic function abnormal [Recovering/Resolving]
  - Acute hepatic failure [Recovering/Resolving]
  - Drug-induced liver injury [Recovering/Resolving]
  - Pyrexia [Unknown]

NARRATIVE: CASE EVENT DATE: 20240201
